FAERS Safety Report 24919589 (Version 1)
Quarter: 2025Q1

REPORT INFORMATION
  Report Type: Report from Study
  Country: US (occurrence: US)
  Receive Date: 20250204
  Receipt Date: 20250204
  Transmission Date: 20250409
  Serious: No
  Sender: EXELIXIS
  Company Number: US-EXELIXIS-CABO-23071689

PATIENT
  Sex: Female

DRUGS (2)
  1. CABOMETYX [Suspect]
     Active Substance: CABOZANTINIB S-MALATE
     Indication: Lung neoplasm malignant
     Dosage: 40 MG, QD
     Route: 048
     Dates: start: 202311
  2. CABOMETYX [Suspect]
     Active Substance: CABOZANTINIB S-MALATE
     Dosage: 20 MG, QD
     Route: 048

REACTIONS (10)
  - Superficial vein thrombosis [Unknown]
  - Hepatic enzyme increased [Unknown]
  - Acne [Unknown]
  - Hypertension [Unknown]
  - Stomatitis [Unknown]
  - Fatigue [Recovering/Resolving]
  - Burning sensation [Unknown]
  - Eye pruritus [Unknown]
  - Skin exfoliation [Unknown]
  - Off label use [Unknown]
